FAERS Safety Report 25628221 (Version 1)
Quarter: 2025Q3

REPORT INFORMATION
  Report Type: Spontaneous
  Country: US (occurrence: US)
  Receive Date: 20250731
  Receipt Date: 20250731
  Transmission Date: 20251021
  Serious: No
  Sender: BAYER HEALTHCARE PHARMACEUTICALS INC.
  Company Number: US-BAYER-2025A102094

PATIENT
  Age: 69 Year
  Sex: Female

DRUGS (4)
  1. CIPROFLOXACIN [Suspect]
     Active Substance: CIPROFLOXACIN
  2. NAPROXEN [Suspect]
     Active Substance: NAPROXEN
  3. VANCOMYCIN [Concomitant]
     Active Substance: VANCOMYCIN
  4. CEFTRIAXONE [Concomitant]
     Active Substance: CEFTRIAXONE

REACTIONS (1)
  - Hypersensitivity [None]
